FAERS Safety Report 8883307 (Version 1)
Quarter: 2012Q4

REPORT INFORMATION
  Report Type: 
  Country: US (occurrence: US)
  Receive Date: 20121102
  Receipt Date: 20121102
  Transmission Date: 20130627
  Serious: Yes (Other)
  Sender: FDA-Public Use
  Company Number: US-PFIZER INC-2012273444

PATIENT
  Age: 71 Year
  Sex: Male
  Weight: 125 kg

DRUGS (1)
  1. LYRICA [Suspect]
     Indication: DIABETIC PERIPHERAL NEUROPATHY
     Dosage: 5 mg, 3x/day
     Route: 048
     Dates: start: 201201

REACTIONS (2)
  - Bladder cancer [Recovered/Resolved]
  - Drug intolerance [Unknown]
